FAERS Safety Report 9960258 (Version 1)
Quarter: 2014Q1

REPORT INFORMATION
  Report Type: Report from Study
  Country: US (occurrence: US)
  Receive Date: 20140305
  Receipt Date: 20140305
  Transmission Date: 20141002
  Serious: Yes (Other)
  Sender: FDA-Public Use
  Company Number: US-ABBVIE-13P-163-1101414-00

PATIENT
  Sex: Female
  Weight: 72.19 kg

DRUGS (8)
  1. HUMIRA [Suspect]
     Indication: PSORIATIC ARTHROPATHY
     Dates: start: 2009
  2. HUMIRA [Suspect]
     Indication: PSORIASIS
     Dates: start: 2012, end: 2012
  3. HUMIRA [Suspect]
     Dates: start: 2012, end: 2012
  4. METHOTREXATE [Suspect]
     Indication: PSORIASIS
  5. LEVOXYL [Concomitant]
     Indication: HYPOTHYROIDISM
  6. CITALOPRAM [Concomitant]
     Indication: ANXIETY
  7. CITALOPRAM [Concomitant]
     Indication: OBSESSIVE-COMPULSIVE DISORDER
  8. PANTOPRAZOLE [Concomitant]
     Indication: ULCER

REACTIONS (9)
  - Renal cancer [Unknown]
  - Psoriatic arthropathy [Recovered/Resolved]
  - Nasopharyngitis [Recovered/Resolved]
  - Psoriasis [Not Recovered/Not Resolved]
  - Swelling [Not Recovered/Not Resolved]
  - Arthritis [Not Recovered/Not Resolved]
  - Diarrhoea [Recovered/Resolved]
  - Pancreatic disorder [Recovered/Resolved]
  - Fatigue [Recovered/Resolved]
